FAERS Safety Report 7544623-X (Version None)
Quarter: 2011Q2

REPORT INFORMATION
  Report Type: 
  Country: None (occurrence: None)
  Receive Date: 20110614
  Receipt Date: 20090520
  Transmission Date: 20111010
  Serious: No
  Sender: FDA-Public Use
  Company Number: 2009BI015474

PATIENT
  Sex: Female

DRUGS (4)
  1. TYSABRI [Suspect]
     Indication: MULTIPLE SCLEROSIS
     Route: 042
     Dates: start: 20081219, end: 20101001
  2. ZOLOFT [Concomitant]
     Indication: DEPRESSION
  3. TYSABRI [Suspect]
     Route: 042
  4. LEXAPRO [Concomitant]
     Indication: DEPRESSION

REACTIONS (21)
  - MEMORY IMPAIRMENT [None]
  - DEAFNESS UNILATERAL [None]
  - TENSION [None]
  - HYPOAESTHESIA [None]
  - TREMOR [None]
  - THERMAL BURN [None]
  - MUSCULOSKELETAL PAIN [None]
  - LOSS OF CONTROL OF LEGS [None]
  - PSYCHOMOTOR HYPERACTIVITY [None]
  - BACK PAIN [None]
  - ANXIETY [None]
  - VIBRATORY SENSE INCREASED [None]
  - PAIN IN EXTREMITY [None]
  - PAIN [None]
  - DIPLOPIA [None]
  - CONTUSION [None]
  - MUSCULAR WEAKNESS [None]
  - ARTHRALGIA [None]
  - INSOMNIA [None]
  - MULTIPLE SCLEROSIS [None]
  - FALL [None]
